FAERS Safety Report 17217671 (Version 1)
Quarter: 2019Q4

REPORT INFORMATION
  Report Type: Spontaneous
  Country: SE (occurrence: SE)
  Receive Date: 20191231
  Receipt Date: 20191231
  Transmission Date: 20200122
  Serious: Yes (Hospitalization)
  Sender: FDA-Public Use
  Company Number: SE-ALVOGEN-2019-ALVOGEN-102227

PATIENT
  Age: 30 Year
  Sex: Female

DRUGS (4)
  1. PROPIOMAZINE MALEATE [Suspect]
     Active Substance: PROPIOMAZINE MALEATE
     Indication: PRODUCT USED FOR UNKNOWN INDICATION
     Route: 048
     Dates: start: 20190813, end: 20190813
  2. ALPRAZOLAM. [Suspect]
     Active Substance: ALPRAZOLAM
     Indication: PRODUCT USED FOR UNKNOWN INDICATION
     Dates: start: 20190813, end: 20190813
  3. FLUOXETINE [Suspect]
     Active Substance: FLUOXETINE HYDROCHLORIDE
     Indication: PRODUCT USED FOR UNKNOWN INDICATION
     Dates: start: 20190813, end: 20190813
  4. ZOPICLONE [Suspect]
     Active Substance: ZOPICLONE
     Indication: PRODUCT USED FOR UNKNOWN INDICATION
     Dates: start: 20190813, end: 20190813

REACTIONS (6)
  - Intentional overdose [Unknown]
  - Depressed level of consciousness [Unknown]
  - Akathisia [Unknown]
  - Dysarthria [Unknown]
  - Intentional self-injury [Unknown]
  - Formication [Unknown]

NARRATIVE: CASE EVENT DATE: 20190813
